FAERS Safety Report 8726225 (Version 2)
Quarter: 2012Q4

REPORT INFORMATION
  Report Type: 
  Country: FR (occurrence: FR)
  Receive Date: 20120816
  Receipt Date: 20120904
  Transmission Date: 20130627
  Serious: Yes (Hospitalization)
  Sender: FDA-Public Use
  Company Number: FR-PFIZER INC-2012195280

PATIENT
  Age: 89 Year
  Sex: Female

DRUGS (7)
  1. EFFEXOR LP [Suspect]
     Indication: DEPRESSION
     Dosage: 37.5 mg, 1x/day
     Route: 048
     Dates: start: 2012, end: 20120701
  2. ESOMEPRAZOLE [Suspect]
     Dosage: 1 DF, UNK
     Route: 048
     Dates: end: 20120702
  3. APROVEL [Suspect]
     Dosage: 150 mg, each two days
     Route: 048
     Dates: end: 20120703
  4. TANAKAN [Suspect]
     Dosage: 1 DF, 2x/day
     Route: 048
     Dates: end: 20120701
  5. KARDEGIC [Concomitant]
     Dosage: UNK
  6. ZOLPIDEM [Concomitant]
     Dosage: UNK
  7. AMOXICILLIN [Concomitant]
     Dosage: UNK

REACTIONS (3)
  - Hyponatraemia [Recovering/Resolving]
  - Hypertension [Unknown]
  - Urinary tract infection [Unknown]
